FAERS Safety Report 4823332-1 (Version None)
Quarter: 2005Q4

REPORT INFORMATION
  Report Type: 
  Country: None (occurrence: None)
  Receive Date: 20051108
  Receipt Date: 20051108
  Transmission Date: 20060501
  Serious: Yes (Other)
  Sender: FDA-Public Use
  Company Number: None

PATIENT
  Age: 48 Year
  Sex: Female
  Weight: 58.0604 kg

DRUGS (1)
  1. TRILEPTAL [Suspect]
     Indication: MANIA
     Dosage: 100MG    ! X DAILY   PO
     Route: 048
     Dates: start: 20050501, end: 20050901

REACTIONS (5)
  - DRY EYE [None]
  - GAIT DISTURBANCE [None]
  - HYPONATRAEMIA [None]
  - MUSCLE DISORDER [None]
  - SPEECH DISORDER [None]
